FAERS Safety Report 5514998-1 (Version None)
Quarter: 2007Q4

REPORT INFORMATION
  Report Type: 
  Country: None (occurrence: None)
  Receive Date: 20071113
  Receipt Date: 20061108
  Transmission Date: 20080405
  Serious: No
  Sender: FDA-Public Use
  Company Number: A0626749A

PATIENT
  Age: 85 Year
  Sex: Male

DRUGS (9)
  1. COREG [Suspect]
     Dosage: 6.25MG TWICE PER DAY
     Route: 048
     Dates: start: 20060915
  2. WARFARIN SODIUM [Concomitant]
  3. FUROSEMIDE [Concomitant]
  4. LOTREL [Concomitant]
  5. THYROID TAB [Concomitant]
  6. LESCOL [Concomitant]
  7. POTASSIUM CHLORIDE [Concomitant]
  8. CILOSTAZOL [Concomitant]
  9. ATIVAN [Concomitant]

REACTIONS (2)
  - LETHARGY [None]
  - NIGHTMARE [None]
